FAERS Safety Report 10050237 (Version 1)
Quarter: 2014Q1

REPORT INFORMATION
  Report Type: Spontaneous
  Country: US (occurrence: None)
  Receive Date: 20140331
  Receipt Date: 20140331
  Transmission Date: 20141002
  Serious: Yes (Hospitalization, Disabling)
  Sender: FDA-Public Use
  Company Number: None

PATIENT
  Age: 47 Year
  Sex: Female
  Weight: 56.7 kg

DRUGS (1)
  1. HYDROXYCHLOROQUINE [Suspect]
     Indication: SJOGREN^S SYNDROME
     Dosage: 1 TAB  TWICE DAILY  TAKEN BY MOUTH
     Route: 048
     Dates: start: 20131012, end: 20131023

REACTIONS (2)
  - Rash [None]
  - Rash [None]
